FAERS Safety Report 11183888 (Version 1)
Quarter: 2015Q2

REPORT INFORMATION
  Report Type: Spontaneous
  Country: US (occurrence: None)
  Receive Date: 20150610
  Receipt Date: 20150610
  Transmission Date: 20150821
  Serious: Yes (Other)
  Sender: FDA-Public Use
  Company Number: 2015EDG00024

PATIENT
  Age: 25 Year
  Sex: Male

DRUGS (3)
  1. SEVOFLURANE. [Concomitant]
     Active Substance: SEVOFLURANE
  2. METHYLENE BLUE (METHYLENE BLUE) INJECTION [Suspect]
     Active Substance: METHYLENE BLUE
     Indication: IMAGING PROCEDURE
     Dosage: TWICE
     Route: 042
  3. FLUOXETINE (FLUOXETINE) UNKNOWN [Suspect]
     Active Substance: FLUOXETINE HYDROCHLORIDE

REACTIONS (4)
  - Drug interaction [None]
  - Lactic acidosis [None]
  - Serotonin syndrome [None]
  - Rhabdomyolysis [None]
